FAERS Safety Report 8921771 (Version 2)
Quarter: 2013Q1

REPORT INFORMATION
  Report Type: Spontaneous
  Country: US (occurrence: US)
  Receive Date: 20121121
  Receipt Date: 20130222
  Transmission Date: 20140127
  Serious: No
  Sender: FDA-Public Use
  Company Number: US-009507513-1211USA008095

PATIENT
  Age: 36 Year
  Sex: Male

DRUGS (1)
  1. PEGINTRON [Suspect]
     Dosage: 0.5 ML, QW
     Route: 058
     Dates: start: 20121001

REACTIONS (2)
  - Drug dose omission [Unknown]
  - Product quality issue [Unknown]
